FAERS Safety Report 13663978 (Version 1)
Quarter: 2017Q2

REPORT INFORMATION
  Report Type: Spontaneous
  Country: US (occurrence: US)
  Receive Date: 20170618
  Receipt Date: 20170618
  Transmission Date: 20170830
  Serious: No
  Sender: FDA-Public Use
  Company Number: None

PATIENT
  Age: 26 Year
  Sex: Male
  Weight: 90 kg

DRUGS (3)
  1. PROPRANOLOL ER [Suspect]
     Active Substance: PROPRANOLOL HYDROCHLORIDE
  2. BUPROPION HYDROCHLORIDE XL [Suspect]
     Active Substance: BUPROPION HYDROCHLORIDE
  3. PROBIOTICS [Suspect]
     Active Substance: PROBIOTICS NOS

REACTIONS (3)
  - Sedation [None]
  - Depression [None]
  - Hypersomnia [None]

NARRATIVE: CASE EVENT DATE: 20170401
